FAERS Safety Report 8852977 (Version 1)
Quarter: 2012Q4

REPORT INFORMATION
  Report Type: 
  Country: JP (occurrence: JP)
  Receive Date: 20121022
  Receipt Date: 20121022
  Transmission Date: 20130627
  Serious: Yes (Life-Threatening, Other)
  Sender: FDA-Public Use
  Company Number: CHPA2012JP022054

PATIENT
  Age: 55 Year
  Sex: Female

DRUGS (2)
  1. MAALOX ANTACID/ANTIGAS MAX QDTABS ASST [Suspect]
     Indication: GASTRITIS
     Dosage: UNK, for 20 years a couple times a month
     Route: 048
     Dates: start: 1992
  2. MAALOX UNKNOWN [Suspect]
     Indication: GASTRITIS
     Dosage: Unk, Unk
     Route: 065

REACTIONS (6)
  - Urticaria [Recovered/Resolved]
  - Pneumonia [Recovered/Resolved]
  - Cough [Recovered/Resolved]
  - Insomnia [Recovered/Resolved]
  - Therapeutic response unexpected [Unknown]
  - Off label use [Unknown]
